FAERS Safety Report 6760450-5 (Version None)
Quarter: 2010Q2

REPORT INFORMATION
  Report Type: 
  Country: None (occurrence: None)
  Receive Date: 20100608
  Receipt Date: 20100527
  Transmission Date: 20101027
  Serious: Yes (Hospitalization)
  Sender: FDA-Public Use
  Company Number: PHHO2010ES07982

PATIENT
  Sex: Female
  Weight: 75.4 kg

DRUGS (1)
  1. AFINITOR [Suspect]
     Indication: RECTAL CANCER
     Dosage: 20 MG, DAILY
     Route: 048
     Dates: start: 20100118, end: 20100218

REACTIONS (2)
  - GUILLAIN-BARRE SYNDROME [None]
  - PNEUMONIA [None]
